FAERS Safety Report 12933552 (Version 1)
Quarter: 2016Q4

REPORT INFORMATION
  Report Type: Spontaneous
  Country: US (occurrence: US)
  Receive Date: 20161111
  Receipt Date: 20161111
  Transmission Date: 20170207
  Serious: No
  Sender: FDA-Public Use
  Company Number: US-CELGENEUS-USA-2016110516

PATIENT
  Age: 64 Year
  Sex: Male

DRUGS (1)
  1. REVLIMID [Suspect]
     Active Substance: LENALIDOMIDE
     Indication: LYMPHOMA
     Dosage: 20 MILLIGRAM
     Route: 048
     Dates: start: 20161005, end: 20161015

REACTIONS (17)
  - Constipation [Unknown]
  - Decreased appetite [Unknown]
  - Anxiety [Unknown]
  - Eye swelling [Unknown]
  - Headache [Unknown]
  - Pruritus [Unknown]
  - Memory impairment [Unknown]
  - Bone pain [Unknown]
  - Depression [Unknown]
  - Fatigue [Unknown]
  - Thirst [Unknown]
  - Asthenia [Unknown]
  - Mood altered [Unknown]
  - Night sweats [Unknown]
  - Dizziness [Unknown]
  - Muscle spasms [Unknown]
  - Neuropathy peripheral [Unknown]

NARRATIVE: CASE EVENT DATE: 20161005
